FAERS Safety Report 13990604 (Version 1)
Quarter: 2017Q3

REPORT INFORMATION
  Report Type: Spontaneous
  Country: US (occurrence: US)
  Receive Date: 20170920
  Receipt Date: 20170920
  Transmission Date: 20171128
  Serious: No
  Sender: FDA-Public Use
  Company Number: US-PFIZER INC-2017403856

PATIENT
  Age: 28 Year
  Sex: Male
  Weight: 75.3 kg

DRUGS (3)
  1. REMODULIN [Suspect]
     Active Substance: TREPROSTINIL
     Indication: PULMONARY HYPERTENSION
     Dosage: 0.030 UG/KG (30MG/KG/MIN), CONTINUOUS
     Route: 041
     Dates: start: 20170210
  2. SILDENAFIL CITRATE. [Suspect]
     Active Substance: SILDENAFIL CITRATE
     Dosage: 20MG, THREE TIMES A DAY (TID)
     Dates: start: 20170819
  3. LETAIRIS [Concomitant]
     Active Substance: AMBRISENTAN
     Dosage: UNK

REACTIONS (5)
  - Swelling face [Unknown]
  - Eye swelling [Unknown]
  - Pyrexia [Unknown]
  - Headache [Unknown]
  - Eye contusion [Unknown]

NARRATIVE: CASE EVENT DATE: 201708
